FAERS Safety Report 5488822-X (Version None)
Quarter: 2007Q4

REPORT INFORMATION
  Report Type: 
  Country: None (occurrence: None)
  Receive Date: 20071017
  Receipt Date: 20071005
  Transmission Date: 20080405
  Serious: Yes (Hospitalization, Other)
  Sender: FDA-Public Use
  Company Number: US-PFIZER INC-2007076313

PATIENT
  Sex: Male
  Weight: 80.7 kg

DRUGS (6)
  1. SUTENT [Suspect]
     Indication: RENAL CELL CARCINOMA STAGE UNSPECIFIED
     Route: 048
  2. MORPHINE [Concomitant]
     Indication: PAIN
  3. PROTONIX [Concomitant]
     Dates: start: 20070725, end: 20070729
  4. ATENOLOL [Concomitant]
  5. DYAZIDE [Concomitant]
  6. ZOCOR [Concomitant]

REACTIONS (9)
  - AGEUSIA [None]
  - ANOREXIA [None]
  - DIARRHOEA [None]
  - DYSGEUSIA [None]
  - EPISTAXIS [None]
  - FATIGUE [None]
  - GASTROOESOPHAGEAL REFLUX DISEASE [None]
  - OESOPHAGEAL SPASM [None]
  - WEIGHT DECREASED [None]
